FAERS Safety Report 16762121 (Version 5)
Quarter: 2020Q2

REPORT INFORMATION
  Report Type: Spontaneous
  Country: BE (occurrence: BE)
  Receive Date: 20190830
  Receipt Date: 20200618
  Transmission Date: 20200713
  Serious: Yes (Death, Life-Threatening)
  Sender: FDA-Public Use
  Company Number: PHHY2019BE201540

PATIENT
  Age: 65 Year
  Sex: Female

DRUGS (14)
  1. ARIPIPRAZOLE. [Suspect]
     Active Substance: ARIPIPRAZOLE
     Indication: MENTAL DISORDER
     Dosage: 15 MG, QD
     Route: 065
  2. NOREPINEPHRINE. [Suspect]
     Active Substance: NOREPINEPHRINE
     Indication: SUPRAVENTRICULAR TACHYCARDIA
     Dosage: UNK (UPTO 6 UG/KG/MIN)
     Route: 042
  3. AMITRIPTYLINE [Suspect]
     Active Substance: AMITRIPTYLINE
     Indication: MENTAL DISORDER
     Dosage: 75 MG, QD
     Route: 065
  4. EPINEPHRINE. [Suspect]
     Active Substance: EPINEPHRINE
     Indication: SUPRAVENTRICULAR TACHYCARDIA
     Dosage: UNK (UP TO 6 UG/KG PER MIN)
     Route: 042
  5. EPINEPHRINE. [Suspect]
     Active Substance: EPINEPHRINE
     Dosage: UP TO 6 MICROG/KG/MIN (INFUSION)
     Route: 050
  6. BUPROPION. [Suspect]
     Active Substance: BUPROPION
     Indication: MENTAL DISORDER
     Dosage: 300 MG, QD
     Route: 065
  7. NOREPINEPHRINE. [Suspect]
     Active Substance: NOREPINEPHRINE
     Dosage: UP TO 6 MICROG/KG/MIN (INFUSION)
     Route: 050
  8. AMISULPRIDE [Suspect]
     Active Substance: AMISULPRIDE
     Indication: MENTAL DISORDER
     Dosage: 50 MG, QD
     Route: 065
  9. MIRTAZAPINE. [Suspect]
     Active Substance: MIRTAZAPINE
     Indication: MENTAL DISORDER
     Dosage: 15 MG, QD
     Route: 048
  10. TRAMADOL HYDROCHLORIDE. [Suspect]
     Active Substance: TRAMADOL HYDROCHLORIDE
     Indication: MENTAL DISORDER
     Dosage: 300 MG, QD
     Route: 065
  11. NEFOPAM [Suspect]
     Active Substance: NEFOPAM
     Dosage: 30 MG, QD
     Route: 048
  12. NEFOPAM [Suspect]
     Active Substance: NEFOPAM
     Dosage: 120 MG, QD
     Route: 048
  13. NEFOPAM [Suspect]
     Active Substance: NEFOPAM
     Indication: ANALGESIC THERAPY
     Dosage: 60 MG, QD
     Route: 048
  14. DIAZEPAM. [Suspect]
     Active Substance: DIAZEPAM
     Indication: PRODUCT USED FOR UNKNOWN INDICATION
     Dosage: UNK
     Route: 065

REACTIONS (14)
  - Drug ineffective [Fatal]
  - Supraventricular tachycardia [Unknown]
  - Hyperlactacidaemia [Unknown]
  - Chronic obstructive pulmonary disease [Unknown]
  - Haemodynamic instability [Unknown]
  - Serotonin syndrome [Fatal]
  - Shock [Fatal]
  - Loss of consciousness [Unknown]
  - Mydriasis [Fatal]
  - Respiratory failure [Unknown]
  - Dyspnoea [Fatal]
  - Autonomic nervous system imbalance [Fatal]
  - Myoclonus [Fatal]
  - Hyperhidrosis [Fatal]
